FAERS Safety Report 12638637 (Version 1)
Quarter: 2016Q3

REPORT INFORMATION
  Report Type: Spontaneous
  Country: US (occurrence: US)
  Receive Date: 20160809
  Receipt Date: 20160809
  Transmission Date: 20161109
  Serious: Yes (Hospitalization, Other)
  Sender: FDA-Public Use
  Company Number: US-DSJP-DSU-2016-126474

PATIENT

DRUGS (1)
  1. BENICAR [Suspect]
     Active Substance: OLMESARTAN MEDOXOMIL
     Indication: HYPERTENSION
     Dosage: 20 MG, QD
     Route: 048
     Dates: start: 20141119, end: 201504

REACTIONS (5)
  - Headache [Recovered/Resolved]
  - Malabsorption [Recovered/Resolved]
  - Gastrointestinal tract adenoma [Unknown]
  - Haemorrhoids [Unknown]
  - Polyp [Unknown]

NARRATIVE: CASE EVENT DATE: 201501
